FAERS Safety Report 17898659 (Version 6)
Quarter: 2022Q3

REPORT INFORMATION
  Report Type: Report from Study
  Country: HR (occurrence: HR)
  Receive Date: 20200615
  Receipt Date: 20220829
  Transmission Date: 20221027
  Serious: Yes (Life-Threatening, Hospitalization, Other)
  Sender: FDA-Public Use
  Company Number: None

PATIENT
  Age: 48 Year
  Sex: Male
  Weight: 80 kg

DRUGS (2)
  1. TRAMETINIB [Suspect]
     Active Substance: TRAMETINIB
     Indication: Metastatic malignant melanoma
     Dosage: 2 MG
     Route: 048
     Dates: start: 20191216, end: 20200514
  2. DABRAFENIB [Suspect]
     Active Substance: DABRAFENIB
     Indication: Metastatic malignant melanoma
     Dosage: 150 MG, BID
     Route: 048
     Dates: start: 20191216, end: 20200514

REACTIONS (11)
  - Renal cancer [Unknown]
  - Second primary malignancy [Unknown]
  - Hepatotoxicity [Unknown]
  - Transaminases increased [Unknown]
  - Hepatic lesion [Unknown]
  - Renal mass [Unknown]
  - Hepatic enzyme increased [Recovering/Resolving]
  - Gamma-glutamyltransferase increased [Unknown]
  - Blood urea increased [Unknown]
  - Mean platelet volume increased [Unknown]
  - Blood alkaline phosphatase decreased [Unknown]

NARRATIVE: CASE EVENT DATE: 20200514
